FAERS Safety Report 6771809-4 (Version None)
Quarter: 2010Q2

REPORT INFORMATION
  Report Type: 
  Country: None (occurrence: None)
  Receive Date: 20100616
  Receipt Date: 20100609
  Transmission Date: 20101027
  Serious: Yes (Death)
  Sender: FDA-Public Use
  Company Number: US-GILEAD-2010-0029527

PATIENT
  Sex: Female
  Weight: 66.057 kg

DRUGS (23)
  1. LETAIRIS [Suspect]
     Indication: PULMONARY ARTERIAL HYPERTENSION
     Route: 048
     Dates: start: 20090416
  2. ADCIRCA [Concomitant]
  3. COUMADIN [Concomitant]
  4. FAMCICLOVIR [Concomitant]
  5. MUCINEX [Concomitant]
  6. DEBROX [Concomitant]
  7. OXYGEN [Concomitant]
  8. CYMBALTA [Concomitant]
  9. TAMIFLU [Concomitant]
  10. LASIX [Concomitant]
  11. NYSTAT [Concomitant]
  12. OS-CAL + D [Concomitant]
  13. FORTICAL [Concomitant]
  14. RIMANTADINE HYDROCHLORIDE [Concomitant]
  15. SPIRIVA [Concomitant]
  16. LIDODERM [Concomitant]
  17. SALINE NASAL SPRAY [Concomitant]
  18. DUONEB [Concomitant]
  19. ALBUTEROL [Concomitant]
  20. SENNA [Concomitant]
  21. MS CONTIN [Concomitant]
  22. DILAUDID [Concomitant]
  23. PREVACID [Concomitant]

REACTIONS (1)
  - DEATH [None]
